FAERS Safety Report 11765575 (Version 1)
Quarter: 2015Q4

REPORT INFORMATION
  Report Type: Spontaneous
  Country: US (occurrence: US)
  Receive Date: 20151120
  Receipt Date: 20151120
  Transmission Date: 20160304
  Serious: No
  Sender: FDA-Public Use
  Company Number: US-ELI_LILLY_AND_COMPANY-US201406004151

PATIENT
  Age: 59 Year
  Sex: Female

DRUGS (1)
  1. FORTEO [Suspect]
     Active Substance: TERIPARATIDE
     Indication: OSTEOPOROSIS
     Dosage: UNK, QD
     Route: 065
     Dates: start: 20140604

REACTIONS (5)
  - Injection site erythema [Recovered/Resolved]
  - Dizziness [Unknown]
  - Anxiety [Unknown]
  - Fear of injection [Unknown]
  - Headache [Unknown]

NARRATIVE: CASE EVENT DATE: 20140604
